APPROVED DRUG PRODUCT: CEFAZOLIN SODIUM
Active Ingredient: CEFAZOLIN SODIUM
Strength: EQ 20GM BASE/VIAL
Dosage Form/Route: INJECTABLE;INJECTION
Application: A065296 | Product #001
Applicant: CEPHAZONE PHARMA LLC
Approved: Mar 18, 2009 | RLD: No | RS: No | Type: DISCN